FAERS Safety Report 25372009 (Version 1)
Quarter: 2025Q2

REPORT INFORMATION
  Report Type: Spontaneous
  Country: TR (occurrence: TR)
  Receive Date: 20250529
  Receipt Date: 20250529
  Transmission Date: 20250716
  Serious: Yes (Other)
  Sender: RANBAXY
  Company Number: TR-SUN PHARMACEUTICAL INDUSTRIES LTD-2023R1-388502

PATIENT
  Age: 47 Year
  Sex: Female

DRUGS (1)
  1. ETODOLAC [Suspect]
     Active Substance: ETODOLAC
     Indication: Erythema
     Route: 065

REACTIONS (1)
  - Acute generalised exanthematous pustulosis [Recovered/Resolved]
